FAERS Safety Report 21658328 (Version 1)
Quarter: 2022Q4

REPORT INFORMATION
  Report Type: Spontaneous
  Country: US (occurrence: None)
  Receive Date: 20221128
  Receipt Date: 20221128
  Transmission Date: 20230113
  Serious: Yes (Death)
  Sender: FDA-Public Use
  Company Number: None

PATIENT
  Age: 54 Year
  Sex: Male

DRUGS (1)
  1. VANCOMYCIN [Suspect]
     Active Substance: VANCOMYCIN

REACTIONS (4)
  - Hypophagia [None]
  - Cellulitis [None]
  - Sepsis [None]
  - Staphylococcal infection [None]

NARRATIVE: CASE EVENT DATE: 20220430
